FAERS Safety Report 9818826 (Version 2)
Quarter: 2013Q4

REPORT INFORMATION
  Report Type: Spontaneous
  Country: US (occurrence: None)
  Receive Date: 20131223
  Receipt Date: 20131223
  Transmission Date: 20140711
  Serious: Yes (Other)
  Sender: FDA-Public Use
  Company Number: 217292

PATIENT
  Age: 50 Year
  Sex: Male
  Weight: 79 kg

DRUGS (3)
  1. PICATO GEL [Suspect]
     Indication: ACTINIC KERATOSIS
     Route: 061
     Dates: start: 20110809, end: 20110811
  2. CRESTOR (ROSUVASTATIN) (10 MG) [Concomitant]
  3. QUINAPRIL (QUINAPRIL) (30 MG) [Concomitant]

REACTIONS (2)
  - Rash [None]
  - Incorrect dose administered [None]
